FAERS Safety Report 20803592 (Version 1)
Quarter: 2022Q2

REPORT INFORMATION
  Report Type: Other
  Country: US (occurrence: None)
  Receive Date: 20220509
  Receipt Date: 20220509
  Transmission Date: 20220720
  Serious: No
  Sender: FDA-Public Use
  Company Number: US-ROCHE-3091440

PATIENT

DRUGS (1)
  1. OCREVUS [Suspect]
     Active Substance: OCRELIZUMAB
     Indication: Relapsing-remitting multiple sclerosis
     Dosage: (PRESCRIBED AS INFUSE 300 MG IN DAY 1 AND 15 THEN 600 MG EVERY 6 MONTHS)?DATE OF TREATMENT: 26/MAR/2
     Route: 065
     Dates: start: 20210326

REACTIONS (1)
  - COVID-19 [Unknown]
